FAERS Safety Report 9791503 (Version 1)
Quarter: 2014Q1

REPORT INFORMATION
  Report Type: Spontaneous
  Country: US (occurrence: US)
  Receive Date: 20140101
  Receipt Date: 20140101
  Transmission Date: 20141002
  Serious: Yes (Other)
  Sender: FDA-Public Use
  Company Number: CHPA2013US018973

PATIENT
  Sex: Female

DRUGS (1)
  1. TRANSDERM SCOP [Suspect]
     Dosage: UNK
     Dates: start: 20131121

REACTIONS (3)
  - Vertigo [Unknown]
  - Malaise [Unknown]
  - Drug withdrawal syndrome [Unknown]
